FAERS Safety Report 14289145 (Version 1)
Quarter: 2017Q4

REPORT INFORMATION
  Report Type: Spontaneous
  Country: US (occurrence: US)
  Receive Date: 20171215
  Receipt Date: 20171215
  Transmission Date: 20180321
  Serious: No
  Sender: FDA-Public Use
  Company Number: US-PFIZER INC-2017534978

PATIENT
  Sex: Female
  Weight: 95.25 kg

DRUGS (1)
  1. SPIRONOLACTONE. [Suspect]
     Active Substance: SPIRONOLACTONE
     Indication: FLUID RETENTION
     Dosage: 50MG TABLET ONCE A DAY BY MOUTH
     Route: 048

REACTIONS (1)
  - Blood potassium abnormal [Unknown]
